FAERS Safety Report 9467172 (Version 1)
Quarter: 2013Q3

REPORT INFORMATION
  Report Type: Spontaneous
  Country: FR (occurrence: FR)
  Receive Date: 20130821
  Receipt Date: 20130821
  Transmission Date: 20140515
  Serious: Yes (Hospitalization)
  Sender: FDA-Public Use
  Company Number: FR-ABBOTT-13X-056-1134752-00

PATIENT
  Age: 48 Year
  Sex: Male

DRUGS (4)
  1. DEPAKOTE [Suspect]
     Indication: BIPOLAR DISORDER
     Route: 048
     Dates: start: 20130605, end: 20130607
  2. DEPAKOTE [Suspect]
     Route: 048
     Dates: start: 20130530, end: 20130604
  3. TERCIAN [Suspect]
     Indication: PRODUCT USED FOR UNKNOWN INDICATION
     Route: 048
     Dates: start: 20130528
  4. TRANXENE [Concomitant]
     Indication: PRODUCT USED FOR UNKNOWN INDICATION
     Dates: start: 20130526

REACTIONS (5)
  - Prothrombin level decreased [Recovered/Resolved]
  - Hepatitis [Recovered/Resolved]
  - Transaminases increased [Recovered/Resolved]
  - Blood alkaline phosphatase increased [Recovered/Resolved]
  - Abdominal pain [Recovered/Resolved]
